FAERS Safety Report 12741530 (Version 2)
Quarter: 2016Q4

REPORT INFORMATION
  Report Type: Report from Study
  Country: US (occurrence: US)
  Receive Date: 20160914
  Receipt Date: 20161027
  Transmission Date: 20170207
  Serious: Yes (Death)
  Sender: FDA-Public Use
  Company Number: US-OTSUKA-2016_021958

PATIENT
  Age: 33 Year
  Sex: Male
  Weight: 71.7 kg

DRUGS (21)
  1. RISPERDAL [Concomitant]
     Active Substance: RISPERIDONE
     Dosage: 2 MG, BID RECEIVED 6 DOSES
     Route: 048
     Dates: start: 20160904, end: 20160907
  2. VISTARIL [Concomitant]
     Active Substance: HYDROXYZINE PAMOATE
     Dosage: 100 MG, Q AM
     Route: 048
     Dates: end: 20160729
  3. TUBERCULIN NOS [Concomitant]
     Active Substance: TUBERCULIN PURIFIED PROTEIN DERIVATIVE
     Dosage: 0.1 ML, UNK
     Route: 023
     Dates: start: 20160811
  4. CARMEX [Concomitant]
     Active Substance: CAMPHOR\MENTHOL\PHENOL\POTASSIUM ALUM\SALICYLIC ACID
     Indication: PRODUCT USED FOR UNKNOWN INDICATION
     Dosage: UNK, PRN
     Route: 065
     Dates: start: 20160809
  5. ZOLOFT [Concomitant]
     Active Substance: SERTRALINE HYDROCHLORIDE
     Dosage: 100 MG, QAM
     Route: 048
     Dates: start: 20160814, end: 20160814
  6. VISTARIL [Concomitant]
     Active Substance: HYDROXYZINE PAMOATE
     Indication: PRODUCT USED FOR UNKNOWN INDICATION
     Dosage: 50 MG, QHS
     Route: 048
     Dates: end: 20160725
  7. NICOTINE. [Concomitant]
     Active Substance: NICOTINE
     Indication: NICOTINE DEPENDENCE
     Dosage: 14 MG, /24 HOURS PRN
     Route: 061
     Dates: start: 20160804, end: 20160906
  8. ATIVAN [Concomitant]
     Active Substance: LORAZEPAM
     Indication: AGITATION
     Dosage: 1 ML, Q4HR AS NEEDED (2 MG/ ML)
     Route: 030
     Dates: start: 20160813
  9. ATIVAN [Concomitant]
     Active Substance: LORAZEPAM
     Indication: ABNORMAL BEHAVIOUR
  10. HALOPERIDOL. [Concomitant]
     Active Substance: HALOPERIDOL
     Indication: ABNORMAL BEHAVIOUR
  11. RISPERDAL [Concomitant]
     Active Substance: RISPERIDONE
     Indication: AFFECTIVE DISORDER
     Dosage: 4 MG, BID
     Route: 048
     Dates: start: 20160804, end: 20160904
  12. ATIVAN [Concomitant]
     Active Substance: LORAZEPAM
     Indication: AGITATION
     Dosage: 2 MG, Q4HR AS NEEDED
     Route: 065
  13. COGENTIN [Suspect]
     Active Substance: BENZTROPINE MESYLATE
     Indication: EXTRAPYRAMIDAL DISORDER
     Dosage: 1 MG, QHS
     Route: 048
  14. ATIVAN [Concomitant]
     Active Substance: LORAZEPAM
     Indication: AGGRESSION
  15. ARIPIPRAZOLE. [Suspect]
     Active Substance: ARIPIPRAZOLE
     Indication: SCHIZOPHRENIA
     Dosage: 400 MG, QM
     Route: 030
     Dates: start: 20160629
  16. RISPERDAL [Concomitant]
     Active Substance: RISPERIDONE
     Indication: PSYCHOTIC DISORDER
     Dosage: 4 MG, QHS FOR 2WEEKS
     Route: 048
     Dates: start: 20160718, end: 20160720
  17. TUBERCULIN NOS [Concomitant]
     Active Substance: TUBERCULIN PURIFIED PROTEIN DERIVATIVE
     Indication: PRODUCT USED FOR UNKNOWN INDICATION
     Dosage: 0.1 ML, UNK
     Route: 023
     Dates: start: 20160804
  18. HALOPERIDOL. [Concomitant]
     Active Substance: HALOPERIDOL
     Indication: AGITATION
     Dosage: 2 ML, Q4HR, AS NEEDED (5 MG/ML)
     Route: 030
     Dates: start: 20160813
  19. ZOLOFT [Concomitant]
     Active Substance: SERTRALINE HYDROCHLORIDE
     Indication: PRODUCT USED FOR UNKNOWN INDICATION
     Dosage: 50 MG, QHS
     Route: 048
  20. COGENTIN [Suspect]
     Active Substance: BENZTROPINE MESYLATE
     Dosage: 1 MG, BID
     Route: 048
     Dates: start: 20160804, end: 20160907
  21. INVEGA SUSTENNA [Concomitant]
     Active Substance: PALIPERIDONE PALMITATE
     Indication: PRODUCT USED FOR UNKNOWN INDICATION
     Dosage: 156 MG, TO FOLLOW Q 4 WEEKS
     Route: 030

REACTIONS (1)
  - Road traffic accident [Fatal]

NARRATIVE: CASE EVENT DATE: 20160909
